FAERS Safety Report 22262622 (Version 2)
Quarter: 2023Q2

REPORT INFORMATION
  Report Type: Other
  Country: JP (occurrence: JP)
  Receive Date: 20230428
  Receipt Date: 20230504
  Transmission Date: 20230721
  Serious: Yes (Death, Other)
  Sender: FDA-Public Use
  Company Number: JP-CHUGAI-2023015338

PATIENT
  Age: 54 Year
  Sex: Male

DRUGS (9)
  1. HERCEPTIN [Suspect]
     Active Substance: TRASTUZUMAB
     Indication: Gastric cancer
     Dosage: UNK
     Route: 041
  2. GIMERACIL\OTERACIL\TEGAFUR [Concomitant]
     Active Substance: GIMERACIL\OTERACIL\OTERACIL POTASSIUM\TEGAFUR
     Indication: Gastric cancer
     Dosage: UNK
     Route: 048
  3. CISPLATIN [Concomitant]
     Active Substance: CISPLATIN
     Indication: Gastric cancer
     Dosage: UNK
     Route: 041
  4. PREDNISOLONE [Concomitant]
     Active Substance: PREDNISOLONE
     Indication: Paraneoplastic dermatomyositis
     Dosage: 60 MG/DAY
     Route: 048
  5. PREDNISOLONE [Concomitant]
     Active Substance: PREDNISOLONE
     Dosage: 55 MG/DAY
     Route: 048
  6. PREDNISOLONE [Concomitant]
     Active Substance: PREDNISOLONE
     Dosage: 50 MG/DAY
     Route: 048
  7. PREDNISOLONE [Concomitant]
     Active Substance: PREDNISOLONE
     Dosage: 45 MG/DAY
     Route: 048
  8. PREDNISOLONE [Concomitant]
     Active Substance: PREDNISOLONE
     Dosage: 40 MG/DAY
     Route: 048
  9. PREDNISOLONE [Concomitant]
     Active Substance: PREDNISOLONE
     Dosage: 35 MG/DAY
     Route: 048

REACTIONS (2)
  - Pneumonia aspiration [Unknown]
  - Septic shock [Fatal]
